FAERS Safety Report 6186986-6 (Version None)
Quarter: 2009Q2

REPORT INFORMATION
  Report Type: 
  Country: None (occurrence: None)
  Receive Date: 20090512
  Receipt Date: 20090507
  Transmission Date: 20091009
  Serious: Yes (Hospitalization, Other)
  Sender: FDA-Public Use
  Company Number: US-PURDUE-USA_2009_0038137

PATIENT
  Age: 20 Year
  Sex: Female

DRUGS (3)
  1. OXYCODONE HYDROCHLORIDE [Suspect]
     Indication: BACK PAIN
     Dosage: UNK, UNK
  2. OPANA ER [Suspect]
     Indication: BACK PAIN
     Dosage: 80 MG, BID
     Route: 048
     Dates: start: 20070101
  3. OPANA ER [Suspect]
     Dosage: 40 MG, BID
     Route: 048
     Dates: start: 20090126

REACTIONS (3)
  - DRUG EXPOSURE DURING PREGNANCY [None]
  - DRUG SCREEN NEGATIVE [None]
  - PREMATURE LABOUR [None]
